FAERS Safety Report 6270466-3 (Version None)
Quarter: 2009Q3

REPORT INFORMATION
  Report Type: 
  Country: None (occurrence: None)
  Receive Date: 20090716
  Receipt Date: 20090707
  Transmission Date: 20100115
  Serious: Yes (Congenital Anomaly)
  Sender: FDA-Public Use
  Company Number: DE-ASTRAZENECA-2009PK01419

PATIENT

DRUGS (2)
  1. NAROPIN [Suspect]
     Indication: EPIDURAL ANAESTHESIA
     Route: 064
     Dates: start: 20090224, end: 20090224
  2. NAROPIN [Suspect]
     Indication: DELIVERY
     Route: 064
     Dates: start: 20090224, end: 20090224

REACTIONS (1)
  - NEONATAL ASPHYXIA [None]
